FAERS Safety Report 15384675 (Version 1)
Quarter: 2018Q3

REPORT INFORMATION
  Report Type: Spontaneous
  Country: EG (occurrence: EG)
  Receive Date: 20180914
  Receipt Date: 20180914
  Transmission Date: 20181010
  Serious: Yes (Death, Other)
  Sender: FDA-Public Use
  Company Number: EG-BRISTOL-MYERS SQUIBB COMPANY-BMS-2018-085285

PATIENT
  Age: 69 Year
  Sex: Female
  Weight: 52 kg

DRUGS (1)
  1. OPDIVO [Suspect]
     Active Substance: NIVOLUMAB
     Indication: TONGUE CANCER RECURRENT
     Dosage: 240 MG, Q2WK
     Route: 042
     Dates: start: 20180819, end: 20180902

REACTIONS (2)
  - Autoimmune hepatitis [Recovering/Resolving]
  - Death [Fatal]
